FAERS Safety Report 24058324 (Version 1)
Quarter: 2024Q3

REPORT INFORMATION
  Report Type: Spontaneous
  Country: CN (occurrence: CN)
  Receive Date: 20240708
  Receipt Date: 20240708
  Transmission Date: 20241016
  Serious: Yes (Hospitalization)
  Sender: BEIGENE
  Company Number: CN-BEIGENE-BGN-2024-010024

PATIENT

DRUGS (4)
  1. TISLELIZUMAB [Suspect]
     Active Substance: TISLELIZUMAB
     Indication: Large cell lung cancer
     Dosage: 200 MILLIGRAM
     Route: 041
     Dates: start: 20240518
  2. NEDAPLATIN [Suspect]
     Active Substance: NEDAPLATIN
     Indication: Large cell lung cancer
     Dosage: 110 MILLIGRAM (80 MG/M2, AMOUNT OF CALCULATION 142 MG)
     Route: 041
     Dates: start: 20240517
  3. PACLITAXEL [Concomitant]
     Active Substance: PACLITAXEL
     Indication: Large cell lung cancer
     Dosage: 350 MILLIGRAM
     Dates: start: 20240517
  4. ENDOSTATIN [Concomitant]
     Active Substance: ENDOSTATIN
     Indication: Large cell lung cancer
     Dosage: 180 MILLIGRAM
     Dates: start: 20240517

REACTIONS (1)
  - Myelosuppression [Recovering/Resolving]

NARRATIVE: CASE EVENT DATE: 20240522
